FAERS Safety Report 14858265 (Version 2)
Quarter: 2018Q2

REPORT INFORMATION
  Report Type: Spontaneous
  Country: US (occurrence: US)
  Receive Date: 20180508
  Receipt Date: 20180620
  Transmission Date: 20180711
  Serious: No
  Sender: FDA-Public Use
  Company Number: US-ASTRAZENECA-2018SE48973

PATIENT
  Sex: Male

DRUGS (4)
  1. HYDROXYZINE [Concomitant]
     Active Substance: HYDROXYZINE HYDROCHLORIDE
     Indication: PRURITUS
     Dosage: 2.5ML AS REQUIRED
  2. CALCIUM CARBONATE. [Concomitant]
     Active Substance: CALCIUM CARBONATE
  3. RANITIDINE. [Concomitant]
     Active Substance: RANITIDINE
     Route: 048
  4. NEXIUM [Suspect]
     Active Substance: ESOMEPRAZOLE MAGNESIUM
     Route: 048

REACTIONS (5)
  - Ill-defined disorder [Unknown]
  - Product physical consistency issue [Unknown]
  - Drug dose omission [Unknown]
  - Vomiting [Recovered/Resolved]
  - Product preparation error [Not Recovered/Not Resolved]
